FAERS Safety Report 14794054 (Version 3)
Quarter: 2019Q3

REPORT INFORMATION
  Report Type: Spontaneous
  Country: GB (occurrence: GB)
  Receive Date: 20180423
  Receipt Date: 20190808
  Transmission Date: 20191004
  Serious: Yes (Other)
  Sender: FDA-Public Use
  Company Number: GB-SA-2018SA108389

PATIENT
  Age: 34 Year
  Sex: Female

DRUGS (6)
  1. LEMTRADA [Suspect]
     Active Substance: ALEMTUZUMAB
     Dosage: 12 MG,UNK
     Route: 041
     Dates: start: 20160704
  2. ERGOCALCIFEROL. [Concomitant]
     Active Substance: ERGOCALCIFEROL
     Dosage: UNK UNK,QD
     Route: 065
  3. SERETIDE [Concomitant]
     Active Substance: FLUTICASONE PROPIONATE\SALMETEROL XINAFOATE
     Indication: ASTHMA
     Dosage: UNK UNK,PRN
     Route: 055
  4. VITAMIN D [VITAMIN D NOS] [Concomitant]
     Active Substance: VITAMIN D NOS
     Indication: SUPPLEMENTATION THERAPY
     Dosage: UNK UNK, QD
     Route: 065
  5. TECFIDERA [Concomitant]
     Active Substance: DIMETHYL FUMARATE
     Dosage: UNK UNK,BID
     Route: 048
     Dates: start: 201406, end: 201603
  6. LEMTRADA [Suspect]
     Active Substance: ALEMTUZUMAB
     Dosage: 12 MG,UNK
     Route: 041
     Dates: start: 20170703

REACTIONS (10)
  - Contusion [Unknown]
  - Vaginal discharge [Unknown]
  - Thyroid disorder [Not Recovered/Not Resolved]
  - Epistaxis [Unknown]
  - Skin discolouration [Unknown]
  - Gingival bleeding [Unknown]
  - Fatigue [Unknown]
  - Platelet count decreased [Unknown]
  - Immune thrombocytopenic purpura [Unknown]
  - Exposure during pregnancy [Unknown]

NARRATIVE: CASE EVENT DATE: 2018
